FAERS Safety Report 9614388 (Version 1)
Quarter: 2013Q4

REPORT INFORMATION
  Report Type: Spontaneous
  Country: US (occurrence: None)
  Receive Date: 20131008
  Receipt Date: 20131008
  Transmission Date: 20140711
  Serious: Yes (Hospitalization)
  Sender: FDA-Public Use
  Company Number: None

PATIENT
  Age: 59 Year
  Sex: Male
  Weight: 116.4 kg

DRUGS (1)
  1. VISMODEGIB [Suspect]
     Indication: PANCREATIC CARCINOMA METASTATIC
     Dosage: 150MG  ORAL DAILY
     Route: 048
     Dates: start: 20130808, end: 20131003

REACTIONS (4)
  - Dyspnoea [None]
  - Thrombosis [None]
  - Pneumonitis [None]
  - Oxygen saturation decreased [None]
